FAERS Safety Report 18066491 (Version 2)
Quarter: 2020Q3

REPORT INFORMATION
  Report Type: Spontaneous
  Country: US (occurrence: US)
  Receive Date: 20200724
  Receipt Date: 20200903
  Transmission Date: 20201103
  Serious: No
  Sender: FDA-Public Use
  Company Number: US-VERTEX PHARMACEUTICALS-2020-015089

PATIENT
  Sex: Female
  Weight: 58 kg

DRUGS (12)
  1. ZOLOFT [Interacting]
     Active Substance: SERTRALINE HYDROCHLORIDE
     Indication: ANXIETY
     Route: 065
  2. TRIKAFTA [Suspect]
     Active Substance: ELEXACAFTOR\IVACAFTOR\TEZACAFTOR
     Indication: CYSTIC FIBROSIS
     Dosage: 2 TABS (100MG ELEXACAFTOR/50MG TEZACAFTOR/75MG IVACAFTOR) AM AND 1 TAB (150MG IVACAFTOR) PM
     Route: 048
     Dates: start: 202006, end: 20200826
  3. CRANBERRY [ASCORBIC ACID;VACCINIUM MACROCARPON] [Concomitant]
     Active Substance: ASCORBIC ACID\CRANBERRY
     Dosage: 6000?100MG CAPSULE
  4. POTASSIUM [Concomitant]
     Active Substance: POTASSIUM
     Dosage: 595(99)MG TABLET
  5. XYZAL [Concomitant]
     Active Substance: LEVOCETIRIZINE DIHYDROCHLORIDE
  6. PREVACID [Concomitant]
     Active Substance: LANSOPRAZOLE
  7. MAGNESIUM [Concomitant]
     Active Substance: MAGNESIUM
  8. LEVALBUTEROL [LEVOSALBUTAMOL] [Concomitant]
     Active Substance: LEVALBUTEROL
  9. FERROUS SULFATE. [Concomitant]
     Active Substance: FERROUS SULFATE
     Dosage: 324(65)MG TABLET  DR
  10. QUINAPRIL. [Concomitant]
     Active Substance: QUINAPRIL
  11. ZENPEP [Concomitant]
     Active Substance: PANCRELIPASE AMYLASE\PANCRELIPASE LIPASE\PANCRELIPASE PROTEASE
     Dosage: 20?63?84K CAPSULE DR
  12. NOVOLOG [Concomitant]
     Active Substance: INSULIN ASPART
     Dosage: 100/ML

REACTIONS (11)
  - Arthralgia [Not Recovered/Not Resolved]
  - Drug interaction [Not Recovered/Not Resolved]
  - Headache [Not Recovered/Not Resolved]
  - Blood pressure increased [Not Recovered/Not Resolved]
  - Pyrexia [Not Recovered/Not Resolved]
  - Chest discomfort [Recovering/Resolving]
  - Myalgia [Not Recovered/Not Resolved]
  - Anxiety [Not Recovered/Not Resolved]
  - Pain [Not Recovered/Not Resolved]
  - Insomnia [Not Recovered/Not Resolved]
  - Breast discolouration [Recovered/Resolved]

NARRATIVE: CASE EVENT DATE: 2020
